FAERS Safety Report 14588135 (Version 1)
Quarter: 2018Q1

REPORT INFORMATION
  Report Type: Spontaneous
  Country: US (occurrence: US)
  Receive Date: 20180301
  Receipt Date: 20180301
  Transmission Date: 20180509
  Serious: No
  Sender: FDA-Public Use
  Company Number: US-PERRIGO-17US023442

PATIENT
  Age: 68 Year
  Sex: Male
  Weight: 102.4 kg

DRUGS (1)
  1. TESTOSTERONE CYPIONATE. [Suspect]
     Active Substance: TESTOSTERONE CYPIONATE
     Indication: ANDROGEN DEFICIENCY
     Dosage: 300 MG, ONCE EVERY THREE WEEKS
     Route: 030

REACTIONS (2)
  - Weight increased [Recovering/Resolving]
  - Blood testosterone decreased [Unknown]

NARRATIVE: CASE EVENT DATE: 201701
